FAERS Safety Report 18485826 (Version 1)
Quarter: 2020Q4

REPORT INFORMATION
  Report Type: Report from Study
  Country: BR (occurrence: BR)
  Receive Date: 20201110
  Receipt Date: 20201110
  Transmission Date: 20210114
  Serious: Yes (Other)
  Sender: FDA-Public Use
  Company Number: NVSC2020BR299552

PATIENT
  Age: 63 Year
  Sex: Female

DRUGS (1)
  1. GALVUS MET [Suspect]
     Active Substance: METFORMIN HYDROCHLORIDE\VILDAGLIPTIN
     Indication: PRODUCT USED FOR UNKNOWN INDICATION
     Dosage: 1 DF, TID (STARTED TWO OR THREE YEARS AGO)
     Route: 065

REACTIONS (4)
  - Diabetes mellitus [Unknown]
  - Feeling abnormal [Unknown]
  - Hyperglycaemia [Unknown]
  - Malaise [Unknown]

NARRATIVE: CASE EVENT DATE: 20201102
